FAERS Safety Report 7600964-9 (Version None)
Quarter: 2011Q3

REPORT INFORMATION
  Report Type: 
  Country: None (occurrence: None)
  Receive Date: 20110711
  Receipt Date: 20110705
  Transmission Date: 20111222
  Serious: Yes (Other)
  Sender: FDA-Public Use
  Company Number: US-ALEXION-A201100708

PATIENT
  Sex: Female

DRUGS (14)
  1. ZOFRAN [Concomitant]
     Dosage: 8 MG PRN
  2. PREDNISONE [Concomitant]
     Dosage: 20 MG BID
  3. LEXAPRO [Concomitant]
     Dosage: 20 MG QD
  4. MORPHINE SULFATE [Concomitant]
     Dosage: 30 MG PRN
  5. MORPHINE [Concomitant]
     Dosage: 50 MG QD
  6. MULTI-VITAMIN [Concomitant]
     Dosage: UNK QD
  7. ERRIN [Concomitant]
     Dosage: UNK QD
  8. AMBIEN [Concomitant]
     Dosage: 2 MG QD
  9. PROTONIX [Concomitant]
     Dosage: UNK QD
  10. COLACE [Concomitant]
     Dosage: UNK PRN
  11. SOLIRIS [Suspect]
     Indication: PAROXYSMAL NOCTURNAL HAEMOGLOBINURIA
     Dosage: 900 MG, Q2W
     Route: 042
  12. NEUPOGEN [Concomitant]
     Dosage: 300 MG 2XWEEK
  13. CYCLOSPORINE [Concomitant]
     Dosage: 150 MG BID
  14. IMITREX [Concomitant]
     Dosage: UNK PRN

REACTIONS (2)
  - LIVER FUNCTION TEST ABNORMAL [None]
  - PLATELET COUNT DECREASED [None]
